FAERS Safety Report 5615505-5 (Version None)
Quarter: 2008Q1

REPORT INFORMATION
  Report Type: 
  Country: None (occurrence: None)
  Receive Date: 20080204
  Receipt Date: 20080204
  Transmission Date: 20080703
  Serious: Yes (Other)
  Sender: FDA-Public Use
  Company Number: None

PATIENT

DRUGS (1)
  1. BUDEPRION XL 300 MG [Suspect]
     Indication: DEPRESSION
     Dates: start: 20070801, end: 20071031

REACTIONS (3)
  - DEPRESSION [None]
  - ECONOMIC PROBLEM [None]
  - PHARMACEUTICAL PRODUCT COMPLAINT [None]
